FAERS Safety Report 8305352-8 (Version None)
Quarter: 2012Q2

REPORT INFORMATION
  Report Type: 
  Country: None (occurrence: None)
  Receive Date: 20120423
  Receipt Date: 20120416
  Transmission Date: 20120825
  Serious: Yes (Other)
  Sender: FDA-Public Use
  Company Number: JP-SANOFI-AVENTIS-2012SA021182

PATIENT
  Age: 73 Year
  Sex: Male

DRUGS (8)
  1. ALL OTHER THERAPEUTIC PRODUCTS [Concomitant]
  2. LANTUS [Suspect]
     Indication: TYPE 2 DIABETES MELLITUS
     Route: 058
     Dates: start: 20090624
  3. ANGIOTENSIN II ANTAGONISTS [Concomitant]
  4. HMG COA REDUCTASE INHIBITORS [Concomitant]
  5. INSULIN LISPRO [Concomitant]
     Indication: TYPE 2 DIABETES MELLITUS
     Dosage: 34 U/DAY, DIVIDED INTO 3 DOSES (MEALTIMES)
     Route: 058
     Dates: start: 20090310
  6. CALCIUM CHANNEL BLOCKERS [Concomitant]
  7. DIURETICS [Concomitant]
  8. ANTITHROMBOTIC AGENTS [Concomitant]

REACTIONS (2)
  - LARGE INTESTINE CARCINOMA [None]
  - HYPOGLYCAEMIA [None]
